FAERS Safety Report 5349984-8 (Version None)
Quarter: 2007Q2

REPORT INFORMATION
  Report Type: 
  Country: None (occurrence: None)
  Receive Date: 20070607
  Receipt Date: 20070525
  Transmission Date: 20071010
  Serious: Yes (Other)
  Sender: FDA-Public Use
  Company Number: US-SHR-US-2007-019456

PATIENT
  Age: 54 Year
  Sex: Male

DRUGS (1)
  1. BETASERON [Suspect]
     Dosage: 8 MIU, EVERY 2D
     Route: 058
     Dates: start: 20060404

REACTIONS (5)
  - CONSTIPATION [None]
  - HAEMORRHAGE [None]
  - PRURITUS [None]
  - RHINORRHOEA [None]
  - VISUAL ACUITY REDUCED [None]
